FAERS Safety Report 5245260-2 (Version None)
Quarter: 2007Q1

REPORT INFORMATION
  Report Type: 
  Country: None (occurrence: None)
  Receive Date: 20070223
  Receipt Date: 20070219
  Transmission Date: 20070707
  Serious: Yes (Hospitalization)
  Sender: FDA-Public Use
  Company Number: GB-MERCK-0609GBR00109

PATIENT
  Age: 66 Year
  Sex: Female
  Weight: 85 kg

DRUGS (7)
  1. SINGULAIR [Suspect]
     Indication: ASTHMA
     Route: 048
     Dates: start: 20060101, end: 20060201
  2. SERETIDE [Concomitant]
     Indication: ASTHMA
     Dates: start: 20050601
  3. SERETIDE [Concomitant]
     Indication: CHRONIC OBSTRUCTIVE PULMONARY DISEASE
     Dates: start: 20050601
  4. CIPRAMIL [Concomitant]
     Indication: ANXIETY
     Route: 065
     Dates: start: 20050101
  5. PREDNISOLONE [Concomitant]
     Indication: ASTHMA
     Route: 065
  6. PREDNISOLONE [Concomitant]
     Indication: STATUS ASTHMATICUS
     Route: 065
  7. ACTONEL [Concomitant]
     Route: 065
     Dates: start: 20050601

REACTIONS (1)
  - EOSINOPHILIA [None]
